FAERS Safety Report 24743432 (Version 1)
Quarter: 2024Q4

REPORT INFORMATION
  Report Type: Spontaneous
  Country: UA (occurrence: UA)
  Receive Date: 20241217
  Receipt Date: 20241217
  Transmission Date: 20250115
  Serious: Yes (Hospitalization, Other)
  Sender: AUROBINDO
  Company Number: UA-AUROBINDO-AUR-APL-2024-060628

PATIENT
  Age: 53 Year
  Sex: Male

DRUGS (14)
  1. AMIODARONE [Suspect]
     Active Substance: AMIODARONE
     Indication: Hypertension
     Dosage: UNK
     Route: 065
  2. BISOPROLOL [Suspect]
     Active Substance: BISOPROLOL
     Indication: Hypertension
     Dosage: UNK
     Route: 065
  3. AMLODIPINE [Suspect]
     Active Substance: AMLODIPINE BESYLATE
     Indication: Hypertension
     Dosage: UNK
     Route: 065
  4. LORATADINE [Concomitant]
     Active Substance: LORATADINE
     Indication: Rash
     Route: 048
  5. PREDNISOLONE [Concomitant]
     Active Substance: PREDNISOLONE
     Indication: Rash
     Dosage: UNK
     Route: 065
  6. RINGERS SOLUTION [Concomitant]
     Active Substance: CALCIUM CHLORIDE\POTASSIUM CHLORIDE\SODIUM CHLORIDE
     Indication: Rash
     Dosage: 200 MILLILITER
     Route: 041
  7. SODIUM CHLORIDE [Concomitant]
     Active Substance: SODIUM CHLORIDE
     Indication: Rash
     Dosage: 200 MILLILITER
     Route: 065
  8. DIPHENHYDRAMINE [Concomitant]
     Active Substance: DIPHENHYDRAMINE
     Indication: Rash
     Dosage: 1 ML BY MOUTH AT NIGH
     Route: 048
  9. HYDROCORTISONE [Concomitant]
     Active Substance: HYDROCORTISONE
     Indication: Rash
     Dosage: UNK
     Route: 061
  10. SOLU-MEDROL [Concomitant]
     Active Substance: METHYLPREDNISOLONE SODIUM SUCCINATE
     Indication: Rash
     Dosage: 250 MILLIGRAM
     Route: 041
  11. LANOLIN [Concomitant]
     Active Substance: LANOLIN
     Indication: Rash
     Dosage: UNK
     Route: 065
  12. SALICYLIC ACID [Concomitant]
     Active Substance: SALICYLIC ACID
     Indication: Rash
     Dosage: 1-2%
     Route: 065
  13. Lorinden a [Concomitant]
     Indication: Rash
     Dosage: UNK
     Route: 065
  14. LOCOID [Concomitant]
     Active Substance: HYDROCORTISONE BUTYRATE
     Indication: Rash
     Dosage: UNK
     Route: 065

REACTIONS (2)
  - Dermatitis allergic [Recovering/Resolving]
  - Dermatitis exfoliative generalised [Recovering/Resolving]
